FAERS Safety Report 10069691 (Version 1)
Quarter: 2014Q2

REPORT INFORMATION
  Report Type: Spontaneous
  Country: US (occurrence: None)
  Receive Date: 20140409
  Receipt Date: 20140409
  Transmission Date: 20141212
  Serious: Yes (Other)
  Sender: FDA-Public Use
  Company Number: None

PATIENT
  Age: 32 Year
  Sex: Female
  Weight: 99.79 kg

DRUGS (1)
  1. CHANTIX [Suspect]
     Indication: SMOKING CESSATION THERAPY
     Dosage: 12 WEEKS, 2 PILLS BID, TWICE DAILY, TAKEN BY MOUTH
     Route: 048

REACTIONS (6)
  - Major depression [None]
  - Mood swings [None]
  - Irritability [None]
  - Screaming [None]
  - Dissociative disorder [None]
  - Aggression [None]
